FAERS Safety Report 6217237-1 (Version None)
Quarter: 2009Q2

REPORT INFORMATION
  Report Type: 
  Country: None (occurrence: None)
  Receive Date: 20090608
  Receipt Date: 20090529
  Transmission Date: 20091009
  Serious: Yes (Life-Threatening, Hospitalization)
  Sender: FDA-Public Use
  Company Number: AT-PFIZER INC-2009220848

PATIENT
  Age: 45 Year

DRUGS (6)
  1. XANOR [Suspect]
     Indication: SCHIZOPHRENIA, PARANOID TYPE
     Dosage: 1 MG, 1X/DAY
     Route: 048
     Dates: end: 20090418
  2. AKINETON [Suspect]
     Dosage: 4 MG, 1X/DAY
     Route: 048
     Dates: end: 20090418
  3. DEPAKENE [Suspect]
     Dosage: 500 MG, 1X/DAY
     Route: 048
     Dates: end: 20090418
  4. DOMINAL ^HOMBURG^ [Suspect]
     Dosage: 80 MG, 1X/DAY
     Route: 048
     Dates: end: 20090418
  5. PANTOLOC ^NYCOMED^ [Suspect]
     Dosage: 20 MG, 1X/DAY
     Route: 048
     Dates: end: 20090418
  6. ZYPREXA [Suspect]
     Dosage: 10 MG, 1X/DAY
     Route: 048
     Dates: end: 20090418

REACTIONS (3)
  - BLOOD CREATININE INCREASED [None]
  - HYPONATRAEMIA [None]
  - STATUS EPILEPTICUS [None]
